FAERS Safety Report 4430783-6 (Version None)
Quarter: 2004Q3

REPORT INFORMATION
  Report Type: 
  Country: None (occurrence: None)
  Receive Date: 20040823
  Receipt Date: 20040804
  Transmission Date: 20050211
  Serious: Yes (Disabling)
  Sender: FDA-Public Use
  Company Number: GB-BRISTOL-MYERS SQUIBB COMPANY-12667564

PATIENT
  Age: 68 Year
  Sex: Female

DRUGS (5)
  1. CARBIDOPA AND LEVODOPA [Suspect]
     Indication: PARKINSON'S DISEASE
     Dosage: RESTARTED ON AN UNREPORTED DOSE ON 09-JUL-04. STOPPED 11-JUL-04
     Route: 048
     Dates: start: 20040610, end: 20040619
  2. DICLOFENAC SODIUM [Suspect]
     Indication: PAIN
     Route: 048
     Dates: start: 20040608, end: 20040627
  3. CODEINE SUL TAB [Suspect]
     Indication: PARKINSON'S DISEASE
     Route: 048
     Dates: start: 20040609, end: 20040611
  4. CO-CODAMOL [Concomitant]
  5. LEVOTHYROXINE SODIUM [Concomitant]

REACTIONS (4)
  - AGITATION [None]
  - CONFUSIONAL STATE [None]
  - HALLUCINATION [None]
  - MIOSIS [None]
